FAERS Safety Report 19006445 (Version 8)
Quarter: 2021Q4

REPORT INFORMATION
  Report Type: Spontaneous
  Country: JP (occurrence: JP)
  Receive Date: 20210315
  Receipt Date: 20211004
  Transmission Date: 20220303
  Serious: Yes (Death, Hospitalization, Other)
  Sender: FDA-Public Use
  Company Number: JP-ONO-2021JP005803

PATIENT
  Age: 69 Year
  Sex: Male
  Weight: 65.6 kg

DRUGS (12)
  1. PARSABIV [Suspect]
     Active Substance: ETELCALCETIDE HYDROCHLORIDE
     Indication: Hyperparathyroidism secondary
     Dosage: 2.5 MILLIGRAM, Q56H
     Route: 010
     Dates: start: 20191023, end: 20191125
  2. PARSABIV [Suspect]
     Active Substance: ETELCALCETIDE HYDROCHLORIDE
     Dosage: 5 MILLIGRAM, Q56H
     Route: 010
     Dates: start: 20191127, end: 20200520
  3. PARSABIV [Suspect]
     Active Substance: ETELCALCETIDE HYDROCHLORIDE
     Dosage: 5 MILLIGRAM, Q56H
     Route: 010
     Dates: start: 20200909
  4. DARBEPOETIN ALFA [Concomitant]
     Active Substance: DARBEPOETIN ALFA
     Dosage: 5 MICROGRAM, QWK
     Route: 065
     Dates: end: 20191113
  5. OXAROL [Concomitant]
     Active Substance: MAXACALCITOL
     Dosage: 5 UG, Q56H
     Route: 042
     Dates: end: 20200118
  6. OXAROL [Concomitant]
     Active Substance: MAXACALCITOL
     Dosage: 5 UG, Q56H
     Route: 042
     Dates: start: 20200909
  7. ROCALTROL [Concomitant]
     Active Substance: CALCITRIOL
     Dosage: 0.5 MICROGRAM, Q56H
     Route: 042
     Dates: start: 20200122, end: 20200907
  8. MIRCERA [Concomitant]
     Active Substance: METHOXY POLYETHYLENE GLYCOL-EPOETIN BETA
     Dosage: 25 MICROGRAM, Q4WK
     Route: 065
     Dates: end: 20200831
  9. MIRCERA [Concomitant]
     Active Substance: METHOXY POLYETHYLENE GLYCOL-EPOETIN BETA
     Dosage: 12.5 MICROGRAM, Q4WK
     Route: 065
     Dates: start: 20210101
  10. BIXALOMER [Concomitant]
     Active Substance: BIXALOMER
     Dosage: 1500 MILLIGRAM, QD
     Route: 065
     Dates: end: 20200124
  11. BIXALOMER [Concomitant]
     Active Substance: BIXALOMER
     Dosage: 3000 MILLIGRAM, QD
     Route: 065
     Dates: start: 20200125
  12. FERRIC CITRATE ANHYDROUS [Concomitant]
     Active Substance: FERRIC CITRATE ANHYDROUS
     Dosage: 750 MILLIGRAM, QD
     Route: 065
     Dates: start: 20191130, end: 20200822

REACTIONS (3)
  - Sudden death [Fatal]
  - Pneumonia [Recovered/Resolved]
  - Hypocalcaemia [Recovered/Resolved]

NARRATIVE: CASE EVENT DATE: 20200511
